FAERS Safety Report 22147287 (Version 1)
Quarter: 2023Q1

REPORT INFORMATION
  Report Type: Spontaneous
  Country: CA (occurrence: CA)
  Receive Date: 20230328
  Receipt Date: 20230328
  Transmission Date: 20230418
  Serious: Yes (Hospitalization)
  Sender: FDA-Public Use
  Company Number: CA-WOODWARD-2023-CA-000646

PATIENT
  Age: 87 Year
  Sex: Male

DRUGS (13)
  1. RABEPRAZOLE SODIUM [Suspect]
     Active Substance: RABEPRAZOLE SODIUM
     Indication: Product used for unknown indication
     Dosage: (20 MG,12 HR)
     Route: 048
  2. MYRBETRIQ [Suspect]
     Active Substance: MIRABEGRON
     Dosage: (25 MG,1 D)
     Route: 048
  3. SENOKOT [Suspect]
     Active Substance: SENNOSIDES
     Dosage: DOSE AND FREQUENCY UNKNOWN
     Route: 065
  4. SPIRONOLACTONE [Suspect]
     Active Substance: SPIRONOLACTONE
     Dosage: (25 MG,1 D)
     Route: 048
  5. TOLTERODINE [Suspect]
     Active Substance: TOLTERODINE
     Dosage: (2 MG,12 HR)
     Route: 048
  6. CHOLECALCIFEROL [Suspect]
     Active Substance: CHOLECALCIFEROL
     Dosage: (2000 IU,1 D)
     Route: 048
  7. CRESTOR [Suspect]
     Active Substance: ROSUVASTATIN CALCIUM
     Dosage: (20 MG,1 D)
     Route: 048
  8. DILTIAZEM [Suspect]
     Active Substance: DILTIAZEM
     Dosage: (120 MG,12 HR)
     Route: 065
  9. ELIQUIS [Suspect]
     Active Substance: APIXABAN
     Dosage: (2.5 MG,12 HR)
     Route: 048
  10. FAMOTIDINE [Suspect]
     Active Substance: FAMOTIDINE
     Dosage: (40 MG,1 D)
     Route: 048
  11. FERROUS GLUCONATE [Suspect]
     Active Substance: FERROUS GLUCONATE
     Dosage: (300 MG,8 HR)
     Route: 048
  12. LASIX [Suspect]
     Active Substance: FUROSEMIDE
     Dosage: (20 MG,12 HR)
     Route: 048
  13. CARBIDOPA\LEVODOPA [Suspect]
     Active Substance: CARBIDOPA\LEVODOPA
     Dosage: DOSE UNKNOWN (6 HR)
     Route: 048

REACTIONS (5)
  - Cerebral haemorrhage [Recovering/Resolving]
  - Confusional state [Recovering/Resolving]
  - Fall [Recovering/Resolving]
  - Head injury [Recovering/Resolving]
  - Subarachnoid haemorrhage [Recovering/Resolving]
